FAERS Safety Report 9010480 (Version 3)
Quarter: 2013Q3

REPORT INFORMATION
  Report Type: Report from Study
  Country: DE (occurrence: DE)
  Receive Date: 20130109
  Receipt Date: 20130827
  Transmission Date: 20140515
  Serious: Yes (Hospitalization)
  Sender: FDA-Public Use
  Company Number: DE-ROCHE-1176530

PATIENT
  Age: 54 Year
  Sex: Female
  Weight: 75 kg

DRUGS (7)
  1. BEVACIZUMAB [Suspect]
     Indication: BREAST CANCER
     Dosage: LAST DOSE PRIOR TO SAE: 14/NOV/2012
     Route: 042
     Dates: start: 20120813
  2. DOXORUBICIN [Suspect]
     Indication: BREAST CANCER
     Dosage: LAST DOSE PRIOR TO SAE WAS TAKEN ON 21/NOV/2012
     Route: 042
     Dates: start: 20120813, end: 20121128
  3. PACLITAXEL [Suspect]
     Indication: BREAST CANCER
     Dosage: LAST DOSE PRIOR TO SAE WAS TAKEN ON 21/NOV/2012
     Route: 042
     Dates: start: 20120813, end: 20121128
  4. DEXAMETHASON [Concomitant]
     Route: 065
     Dates: start: 20120813
  5. CLEMASTIN [Concomitant]
     Route: 065
     Dates: start: 20120813
  6. RANITIC [Concomitant]
     Route: 065
     Dates: start: 20120813
  7. VERGENTAN [Concomitant]
     Route: 065
     Dates: start: 20120813

REACTIONS (2)
  - Anal fissure [Recovered/Resolved]
  - Diarrhoea [Recovered/Resolved]
